FAERS Safety Report 5713477-6 (Version None)
Quarter: 2008Q2

REPORT INFORMATION
  Report Type: 
  Country: None (occurrence: None)
  Receive Date: 20080422
  Receipt Date: 20080411
  Transmission Date: 20081010
  Serious: Yes (Hospitalization, Other)
  Sender: FDA-Public Use
  Company Number: PL-BOEHRINGER INGELHEIM GMBH, GERMANY-2008-AP-00059AP

PATIENT
  Sex: Female
  Weight: 84 kg

DRUGS (4)
  1. MOVALIS [Suspect]
     Indication: OSTEOARTHRITIS
     Route: 048
  2. MOVALIS [Suspect]
     Route: 048
     Dates: start: 20071114, end: 20071124
  3. BISOCARD [Concomitant]
  4. ACARD [Concomitant]

REACTIONS (1)
  - ATRIAL FIBRILLATION [None]
